FAERS Safety Report 11897099 (Version 1)
Quarter: 2016Q1

REPORT INFORMATION
  Report Type: Spontaneous
  Country: KR (occurrence: KR)
  Receive Date: 20160107
  Receipt Date: 20160107
  Transmission Date: 20160526
  Serious: Yes (Hospitalization)
  Sender: FDA-Public Use
  Company Number: KR-AMGEN-KORCT2015141176

PATIENT
  Age: 42 Year
  Sex: Female
  Weight: 78.4 kg

DRUGS (17)
  1. G-LASTA [Suspect]
     Active Substance: PEGFILGRASTIM
     Indication: FEBRILE NEUTROPENIA
     Dosage: 6 MG, 1X/3WEEKS
     Route: 058
     Dates: start: 20150905
  2. DEXAMETHASONE. [Concomitant]
     Active Substance: DEXAMETHASONE
     Dosage: 2.25 MG, UNK
     Route: 048
     Dates: start: 20150904, end: 20151110
  3. GASMOTIN [Concomitant]
     Active Substance: MOSAPRIDE CITRATE
     Dosage: 15 MG, UNK
     Route: 048
     Dates: start: 20150904, end: 20151110
  4. ABNOBA VISCUM FRAXINI [Concomitant]
     Dosage: 0.2 MG, UNK
     Route: 042
     Dates: start: 20150925, end: 20151107
  5. DOXORUBICIN [Concomitant]
     Active Substance: DOXORUBICIN
     Dosage: 92 MG, UNK
     Route: 042
     Dates: start: 20150924, end: 20150924
  6. ABNOBA VISCUM FRAXINI [Concomitant]
     Dosage: 0.02 MG, UNK
     Route: 042
     Dates: start: 20150905, end: 20151107
  7. SANCUSO [Concomitant]
     Active Substance: GRANISETRON
     Dosage: 1.3 MG, UNK
     Route: 065
     Dates: start: 20150923, end: 20151104
  8. ADRIAMYCIN [Concomitant]
     Active Substance: DOXORUBICIN HYDROCHLORIDE
     Dosage: 92 MG, UNK
     Route: 042
     Dates: start: 20150904, end: 20151105
  9. DOCETAXEL. [Concomitant]
     Active Substance: DOCETAXEL
     Dosage: 141 MG, UNK
     Route: 042
     Dates: start: 20150904, end: 20150904
  10. DOXORUBICIN [Concomitant]
     Active Substance: DOXORUBICIN
     Dosage: 94 MG, UNK
     Route: 042
     Dates: start: 20150904, end: 20150904
  11. CHLORPHENIRAMINE                   /00072501/ [Concomitant]
     Active Substance: CHLORPHENIRAMINE
     Dosage: 4 MG, UNK
     Route: 042
     Dates: start: 20150904, end: 20151015
  12. G-LASTA [Suspect]
     Active Substance: PEGFILGRASTIM
     Dosage: 6 MG, 1X/3WEEKS
     Route: 058
     Dates: start: 20150925
  13. DOCETAXEL. [Concomitant]
     Active Substance: DOCETAXEL
     Dosage: 141 MG, UNK
     Route: 042
     Dates: start: 20150924, end: 20150924
  14. CYCLOPHOSPHAMIDE. [Concomitant]
     Active Substance: CYCLOPHOSPHAMIDE
     Dosage: 940 MG, UNK
     Route: 042
     Dates: start: 20150904, end: 20150904
  15. NEXIUM [Concomitant]
     Active Substance: ESOMEPRAZOLE MAGNESIUM
     Dosage: 20 MG, UNK
     Route: 048
     Dates: start: 20150904, end: 20151110
  16. ALPHAMIN                           /00137202/ [Concomitant]
     Dosage: 500 UNK, UNK
     Route: 042
     Dates: start: 20150923, end: 20150923
  17. CYCLOPHOSPHAMIDE. [Concomitant]
     Active Substance: CYCLOPHOSPHAMIDE
     Dosage: 925 MG, UNK
     Route: 042
     Dates: start: 20150924, end: 20150924

REACTIONS (1)
  - Febrile neutropenia [Recovered/Resolved]

NARRATIVE: CASE EVENT DATE: 20150930
